FAERS Safety Report 9986331 (Version 1)
Quarter: 2014Q1

REPORT INFORMATION
  Report Type: Report from Study
  Country: US (occurrence: US)
  Receive Date: 20140307
  Receipt Date: 20140307
  Transmission Date: 20141002
  Serious: No
  Sender: FDA-Public Use
  Company Number: US-ABBVIE-13P-163-1088025-00

PATIENT
  Age: 49 Year
  Sex: Female

DRUGS (12)
  1. HUMIRA [Suspect]
     Indication: PSORIASIS
     Dates: start: 20121024
  2. HUMALOG [Concomitant]
     Indication: PRODUCT USED FOR UNKNOWN INDICATION
     Dosage: 75/25, 48 UNITS, TWICE DAILY
  3. VICTOZA [Concomitant]
     Indication: DIABETES MELLITUS
  4. METFORMIN [Concomitant]
     Indication: DIABETES MELLITUS
  5. NEXIUM [Concomitant]
     Indication: PRODUCT USED FOR UNKNOWN INDICATION
  6. LOSARTAN/HCT [Concomitant]
     Indication: HYPERTENSION
  7. ASPIRIN [Concomitant]
     Indication: ANTICOAGULANT THERAPY
  8. METOPROLOL [Concomitant]
     Indication: BLOOD PRESSURE
  9. PLAVIX [Concomitant]
     Indication: ANTICOAGULANT THERAPY
  10. ISOSORB [Concomitant]
     Indication: STENT PLACEMENT
  11. COMBIGAN [Concomitant]
     Indication: RETINAL DETACHMENT
     Dosage: EYE DROPS DAILY
  12. PRAVASTATIN [Concomitant]
     Indication: BLOOD CHOLESTEROL

REACTIONS (1)
  - Thermal burn [Recovering/Resolving]
